FAERS Safety Report 10584019 (Version 1)
Quarter: 2014Q4

REPORT INFORMATION
  Report Type: Spontaneous
  Country: US (occurrence: None)
  Receive Date: 20141113
  Receipt Date: 20141113
  Transmission Date: 20150529
  Serious: No
  Sender: FDA-Public Use
  Company Number: None

PATIENT
  Age: 58 Year
  Sex: Female

DRUGS (1)
  1. HIZENTRA [Suspect]
     Active Substance: HUMAN IMMUNOGLOBULIN G
     Dosage: 10GM  EVERY WEEK SUBCUTANEOUS
     Route: 058

REACTIONS (4)
  - Infusion site swelling [None]
  - Infusion site erythema [None]
  - Infusion site pain [None]
  - Injection site reaction [None]
